FAERS Safety Report 7537463-9 (Version None)
Quarter: 2011Q2

REPORT INFORMATION
  Report Type: 
  Country: None (occurrence: None)
  Receive Date: 20110609
  Receipt Date: 20110531
  Transmission Date: 20111010
  Serious: Yes (Other)
  Sender: FDA-Public Use
  Company Number: PHHY2011US42800

PATIENT
  Sex: Male

DRUGS (5)
  1. FAMPRIDINE [Concomitant]
     Indication: MULTIPLE SCLEROSIS
     Dosage: 10 MG, BID
     Route: 048
  2. VIAGRA [Concomitant]
     Dosage: UNK UKN, PRN
  3. GILENYA [Suspect]
     Indication: RELAPSING-REMITTING MULTIPLE SCLEROSIS
     Dosage: 0.5 MG, QD
     Route: 048
     Dates: start: 20110502, end: 20110519
  4. PROVIGIL [Concomitant]
     Dosage: 200 MG, DAILY
     Route: 048
  5. VITAMIN D [Concomitant]
     Dosage: 50000 U, QW
     Route: 048

REACTIONS (1)
  - MOUTH ULCERATION [None]
